FAERS Safety Report 16286712 (Version 1)
Quarter: 2019Q2

REPORT INFORMATION
  Report Type: Report from Study
  Country: US (occurrence: US)
  Receive Date: 20190508
  Receipt Date: 20190508
  Transmission Date: 20190711
  Serious: Yes (Other)
  Sender: FDA-Public Use
  Company Number: US-ROCHE-2311512

PATIENT
  Age: 62 Year
  Sex: Female
  Weight: 57.2 kg

DRUGS (2)
  1. COBIMETINIB. [Suspect]
     Active Substance: COBIMETINIB
     Indication: CHOLANGIOCARCINOMA
     Dosage: ON DAYS 1- 21. CYCLES REPEAT EVERY 28 DAYS IN THE ABSENCE OF DISEASE PROGRESSION OR UNACCEPTABLE TOX
     Route: 048
     Dates: start: 20180710, end: 20180821
  2. ATEZOLIZUMAB. [Suspect]
     Active Substance: ATEZOLIZUMAB
     Indication: CHOLANGIOCARCINOMA
     Dosage: 30-60 MINUTES ON DAYS 1 AND 15
     Route: 041
     Dates: start: 20180710, end: 20180807

REACTIONS (1)
  - Hypercalcaemia [Recovered/Resolved]

NARRATIVE: CASE EVENT DATE: 20180920
